FAERS Safety Report 5238684-0 (Version None)
Quarter: 2007Q1

REPORT INFORMATION
  Report Type: 
  Country: None (occurrence: None)
  Receive Date: 20070214
  Receipt Date: 20070214
  Transmission Date: 20070707
  Serious: Yes (Disabling)
  Sender: FDA-Public Use
  Company Number: None

PATIENT
  Age: 68 Year
  Sex: Female
  Weight: 80 kg

DRUGS (1)
  1. GADOLINIUM [Suspect]
     Indication: HYPOAESTHESIA
     Dosage: 1 DOSE FOR MRI IV
     Route: 042
     Dates: start: 20060213

REACTIONS (1)
  - NEPHROGENIC FIBROSING DERMOPATHY [None]
